FAERS Safety Report 5793292-8 (Version None)
Quarter: 2008Q2

REPORT INFORMATION
  Report Type: 
  Country: None (occurrence: None)
  Receive Date: 20080626
  Receipt Date: 20080626
  Transmission Date: 20081010
  Serious: Yes (Hospitalization)
  Sender: FDA-Public Use
  Company Number: None

PATIENT
  Sex: Male

DRUGS (1)
  1. SORAFENIB [Suspect]
     Indication: PROSTATE CANCER
     Dosage: 400MG QD PO
     Route: 048
     Dates: start: 20080116

REACTIONS (5)
  - ARTHRALGIA [None]
  - BONE PAIN [None]
  - INTERVERTEBRAL DISC PROTRUSION [None]
  - METASTASES TO BONE [None]
  - PAIN IN EXTREMITY [None]
